FAERS Safety Report 24181210 (Version 4)
Quarter: 2025Q3

REPORT INFORMATION
  Report Type: Report from Study
  Country: EU (occurrence: EU)
  Receive Date: 20240806
  Receipt Date: 20250806
  Transmission Date: 20251020
  Serious: No
  Sender: TAKEDA
  Company Number: EU-TAKEDA-2024TUS078644

PATIENT
  Age: 21 Year
  Sex: Female
  Weight: 68 kg

DRUGS (2)
  1. LANADELUMAB [Suspect]
     Active Substance: LANADELUMAB
     Indication: Hereditary angioedema
     Dosage: 300 MILLIGRAM, Q2WEEKS
     Dates: start: 20221018
  2. LANADELUMAB [Suspect]
     Active Substance: LANADELUMAB
     Dosage: 300 MILLIGRAM, MONTHLY

REACTIONS (3)
  - Viral infection [Recovered/Resolved]
  - Sleep disorder [Recovered/Resolved]
  - Ear pain [Recovered/Resolved]

NARRATIVE: CASE EVENT DATE: 20230101
